FAERS Safety Report 5191596-3 (Version None)
Quarter: 2006Q4

REPORT INFORMATION
  Report Type: 
  Country: None (occurrence: None)
  Receive Date: 20061219
  Receipt Date: 20060818
  Transmission Date: 20070319
  Serious: No
  Sender: FDA-Public Use
  Company Number: VER_0021_2006

PATIENT
  Age: 20 Year
  Sex: Female

DRUGS (1)
  1. EPINEPHRINE [Suspect]
     Indication: ANAPHYLACTIC REACTION
     Dosage: 0.3 MG PRN SC
     Route: 058

REACTIONS (2)
  - DEVICE INEFFECTIVE [None]
  - DRUG INEFFECTIVE [None]
